FAERS Safety Report 8812882 (Version 19)
Quarter: 2015Q2

REPORT INFORMATION
  Report Type: Report from Study
  Country: DE (occurrence: DE)
  Receive Date: 20120927
  Receipt Date: 20150423
  Transmission Date: 20150821
  Serious: Yes (Hospitalization)
  Sender: FDA-Public Use
  Company Number: DE-ROCHE-1134695

PATIENT
  Age: 58 Year
  Sex: Female
  Weight: 70.4 kg

DRUGS (14)
  1. VEMURAFENIB [Suspect]
     Active Substance: VEMURAFENIB
     Dosage: LAST DOSE PRIOR TO SAE: 27/OCT/2012
     Route: 048
     Dates: start: 20121016, end: 20121028
  2. PRAVASTATIN [Concomitant]
     Active Substance: PRAVASTATIN\PRAVASTATIN SODIUM
     Route: 065
     Dates: start: 20120312, end: 20130214
  3. PARACODEINE [Concomitant]
     Route: 065
     Dates: start: 20120223
  4. DERMATOP CREAM [Concomitant]
     Route: 065
     Dates: start: 20120125, end: 20121114
  5. VEMURAFENIB [Suspect]
     Active Substance: VEMURAFENIB
     Route: 048
     Dates: start: 20111229, end: 20120711
  6. ZOLPIDEM [Concomitant]
     Active Substance: ZOLPIDEM\ZOLPIDEM TARTRATE
     Route: 065
     Dates: start: 20120121
  7. VEMURAFENIB [Suspect]
     Active Substance: VEMURAFENIB
     Dosage: LAST DOSE PRIOR TO SAE: 10/OCT/2012
     Route: 048
     Dates: start: 20120920, end: 20121010
  8. L-THYROX [Concomitant]
     Active Substance: LEVOTHYROXINE SODIUM
     Route: 065
     Dates: start: 20120224
  9. HYLO-COMOD [Concomitant]
     Route: 065
     Dates: start: 20120608
  10. CITALOPRAM [Concomitant]
     Active Substance: CITALOPRAM HYDROBROMIDE
     Route: 065
     Dates: start: 20110816
  11. VEMURAFENIB [Suspect]
     Active Substance: VEMURAFENIB
     Dosage: LAST DOSE PRIOR TO SAE : 20/FEB/2013
     Route: 048
     Dates: start: 20121031, end: 20130220
  12. VEMURAFENIB [Suspect]
     Active Substance: VEMURAFENIB
     Indication: MALIGNANT MELANOMA
     Dosage: DATE OF LAST DOSE PRIOR TO SAE: 08/AUG/2012
     Route: 048
     Dates: start: 20120726, end: 20121010
  13. VEMURAFENIB [Suspect]
     Active Substance: VEMURAFENIB
     Dosage: DATE OF LAST DOSE PRIOR TO ADVERSE EVENT: 12/JUL/2012
     Route: 048
     Dates: start: 20120712, end: 20120712
  14. RAMIPRIL. [Concomitant]
     Active Substance: RAMIPRIL
     Route: 065
     Dates: start: 20120630, end: 20121222

REACTIONS (1)
  - Papilloedema [Not Recovered/Not Resolved]

NARRATIVE: CASE EVENT DATE: 20120613
